FAERS Safety Report 24009558 (Version 1)
Quarter: 2024Q2

REPORT INFORMATION
  Report Type: Spontaneous
  Country: US (occurrence: US)
  Receive Date: 20240625
  Receipt Date: 20240625
  Transmission Date: 20240715
  Serious: Yes (Other)
  Sender: FDA-Public Use
  Company Number: US-AMGEN-USASP2024121345

PATIENT
  Age: 71 Year
  Sex: Female

DRUGS (4)
  1. PREDNISONE [Suspect]
     Active Substance: PREDNISONE
     Indication: Sjogren^s syndrome
     Dosage: UNK
     Route: 065
  2. PREDNISONE [Suspect]
     Active Substance: PREDNISONE
     Indication: Asthma
  3. DUPILUMAB [Concomitant]
     Active Substance: DUPILUMAB
     Indication: Sjogren^s syndrome
     Dosage: UNK
     Route: 065
  4. DUPILUMAB [Concomitant]
     Active Substance: DUPILUMAB
     Indication: Asthma

REACTIONS (9)
  - Hypoxia [Recovered/Resolved]
  - Respiratory failure [Recovered/Resolved]
  - Pneumonia viral [Unknown]
  - Dyspnoea [Unknown]
  - Intensive care unit acquired weakness [Unknown]
  - Cough [Unknown]
  - Malaise [Unknown]
  - Pyrexia [Unknown]
  - Vomiting [Unknown]
